FAERS Safety Report 10507928 (Version 1)
Quarter: 2014Q3

REPORT INFORMATION
  Report Type: Spontaneous
  Country: US (occurrence: None)
  Receive Date: 20140915
  Receipt Date: 20140915
  Transmission Date: 20150326
  Serious: Yes (Other)
  Sender: FDA-Public Use
  Company Number: JPI-P-034474

PATIENT
  Age: 58 Year
  Sex: Male
  Weight: 90.9 kg

DRUGS (4)
  1. LEVOTHYROXINE [Concomitant]
     Active Substance: LEVOTHYROXINE
  2. FLUOXETINE HYDROCHLORIDE. [Concomitant]
     Active Substance: FLUOXETINE HYDROCHLORIDE
  3. XYREM [Suspect]
     Active Substance: SODIUM OXYBATE
     Indication: SLEEP DISORDER
     Route: 048
     Dates: start: 20130803, end: 201308
  4. TRIIODOTHYRONINE (LIOTHYRONINE SODIUM) [Concomitant]

REACTIONS (2)
  - Insomnia [None]
  - Sleep apnoea syndrome [None]

NARRATIVE: CASE EVENT DATE: 2013
